FAERS Safety Report 9813457 (Version 1)
Quarter: 2014Q1

REPORT INFORMATION
  Report Type: Spontaneous
  Country: US (occurrence: None)
  Receive Date: 20140109
  Receipt Date: 20140109
  Transmission Date: 20141002
  Serious: Yes (Other)
  Sender: FDA-Public Use
  Company Number: SYM-2013-14413

PATIENT
  Sex: Male

DRUGS (1)
  1. ALDARA [Suspect]
     Indication: PRECANCEROUS SKIN LESION
     Dosage: TOPICAL
     Route: 061

REACTIONS (3)
  - Scab [None]
  - Precancerous skin lesion [None]
  - Disease recurrence [None]
